FAERS Safety Report 6107582-2 (Version None)
Quarter: 2009Q1

REPORT INFORMATION
  Report Type: 
  Country: None (occurrence: None)
  Receive Date: 20090302
  Receipt Date: 20080212
  Transmission Date: 20090719
  Serious: Yes (Hospitalization)
  Sender: FDA-Public Use
  Company Number: WAES 0801USA04426

PATIENT
  Age: 56 Year
  Sex: Female

DRUGS (16)
  1. PRINIVIL [Suspect]
     Indication: HYPERTENSION
     Dosage: PO
     Route: 048
     Dates: end: 20080104
  2. INFUSION (FORM) IXABEPILONE UNK [Suspect]
     Indication: BREAST CANCER
     Dates: start: 20071214
  3. CAPECITABINE UNK [Suspect]
     Indication: BREAST CANCER
     Dosage: 2000 MG/M [2] DAILY/PO
     Route: 048
     Dates: start: 20071214
  4. BENADRYL [Concomitant]
  5. CELEBREX [Concomitant]
  6. COMPAZINE [Concomitant]
  7. DARVOCET-N 100 [Concomitant]
  8. DECADRON [Concomitant]
  9. DURAGESIC-100 [Concomitant]
  10. HYDRODIURIL [Concomitant]
  11. KYTRIL [Concomitant]
  12. NEURONTIN [Concomitant]
  13. PRILOSEC [Concomitant]
  14. TUMS [Concomitant]
  15. ZANTAC [Concomitant]
  16. ACYCLOVIR [Concomitant]

REACTIONS (3)
  - ANGIOEDEMA [None]
  - DYSPHAGIA [None]
  - PRURITUS [None]
